FAERS Safety Report 8071145-2 (Version None)
Quarter: 2012Q1

REPORT INFORMATION
  Report Type: 
  Country: None (occurrence: None)
  Receive Date: 20120125
  Receipt Date: 20120118
  Transmission Date: 20120608
  Serious: Yes (Hospitalization, Other)
  Sender: FDA-Public Use
  Company Number: PHHY2008BR05107

PATIENT
  Age: 77 Year
  Sex: Male

DRUGS (4)
  1. FORADIL [Suspect]
     Indication: DYSPNOEA
  2. LOSARTAN POTASSIUM [Concomitant]
     Indication: HYPERTENSION
     Route: 048
     Dates: start: 20050101
  3. ANDROCUR [Concomitant]
     Indication: PROSTATIC SPECIFIC ANTIGEN ABNORMAL
     Dosage: UNK, UNK
     Route: 048
     Dates: start: 20000101
  4. FORMOTEROL FUMARATE [Suspect]
     Indication: DYSPNOEA

REACTIONS (4)
  - BLOOD PRESSURE ABNORMAL [None]
  - GASTRIC POLYPS [None]
  - PROSTATIC SPECIFIC ANTIGEN ABNORMAL [None]
  - DRUG INEFFECTIVE [None]
